FAERS Safety Report 5422127-8 (Version None)
Quarter: 2007Q3

REPORT INFORMATION
  Report Type: 
  Country: None (occurrence: None)
  Receive Date: 20070822
  Receipt Date: 20070809
  Transmission Date: 20080115
  Serious: Yes (Other)
  Sender: FDA-Public Use
  Company Number: DK-AMGEN-UK232005

PATIENT

DRUGS (1)
  1. ARANESP [Suspect]
     Indication: PRE-EXISTING DISEASE
     Dates: start: 20061001

REACTIONS (3)
  - ASTHENIA [None]
  - DRUG INTOLERANCE [None]
  - PYREXIA [None]
